FAERS Safety Report 9094968 (Version 1)
Quarter: 2013Q1

REPORT INFORMATION
  Report Type: Spontaneous
  Country: US (occurrence: None)
  Receive Date: 20130215
  Receipt Date: 20130215
  Transmission Date: 20140127
  Serious: No
  Sender: FDA-Public Use
  Company Number: None

PATIENT
  Age: 64 Year
  Sex: Female

DRUGS (1)
  1. SORAFENIB TOSYLATE [Suspect]
     Route: 048

REACTIONS (2)
  - Bone marrow disorder [None]
  - Fibrosis [None]
